FAERS Safety Report 9778051 (Version 3)
Quarter: 2014Q1

REPORT INFORMATION
  Report Type: Spontaneous
  Country: JP (occurrence: JP)
  Receive Date: 20131223
  Receipt Date: 20140128
  Transmission Date: 20141002
  Serious: Yes (Hospitalization)
  Sender: FDA-Public Use
  Company Number: JP-ASTRAZENECA-2013SE91850

PATIENT
  Age: 65 Year
  Sex: Male

DRUGS (6)
  1. CRESTOR [Suspect]
     Indication: HYPERCHOLESTEROLAEMIA
     Route: 048
     Dates: end: 201306
  2. CRESTOR [Suspect]
     Indication: HYPERCHOLESTEROLAEMIA
     Route: 048
     Dates: start: 201306, end: 201307
  3. CRESTOR [Suspect]
     Indication: HYPERCHOLESTEROLAEMIA
     Route: 048
     Dates: start: 201307
  4. ZETIA [Suspect]
     Route: 048
     Dates: end: 201312
  5. PLAVIX [Concomitant]
     Dosage: DOSE UNKNOWN
     Route: 048
  6. EPADEL [Concomitant]
     Dosage: DOSE UNKNOWN
     Route: 048
     Dates: start: 20131216

REACTIONS (2)
  - Coronary artery occlusion [Unknown]
  - Rash generalised [Recovered/Resolved]
